FAERS Safety Report 4835497-6 (Version None)
Quarter: 2005Q4

REPORT INFORMATION
  Report Type: 
  Country: None (occurrence: None)
  Receive Date: 20051123
  Receipt Date: 20051111
  Transmission Date: 20060501
  Serious: Yes (Other)
  Sender: FDA-Public Use
  Company Number: US-JNJFOC-20051102151

PATIENT
  Sex: Female
  Weight: 57.15 kg

DRUGS (3)
  1. REMICADE [Suspect]
     Dosage: 3 VIALS
     Route: 042
  2. REMICADE [Suspect]
     Indication: RHEUMATOID ARTHRITIS
     Dosage: 3 VIALS
     Route: 042
  3. PREDNISONE [Concomitant]

REACTIONS (3)
  - BLOOD TEST ABNORMAL [None]
  - LEUKOCYTOCLASTIC VASCULITIS [None]
  - NODULE [None]
